FAERS Safety Report 20184399 (Version 2)
Quarter: 2022Q1

REPORT INFORMATION
  Report Type: Report from Study
  Country: CA (occurrence: CA)
  Receive Date: 20211214
  Receipt Date: 20220211
  Transmission Date: 20220423
  Serious: Yes (Other)
  Sender: FDA-Public Use
  Company Number: CA-Taiho Oncology Inc-EU-2021-03429

PATIENT
  Age: 67 Year
  Sex: Female
  Weight: 74.5 kg

DRUGS (1)
  1. LONSURF [Suspect]
     Active Substance: TIPIRACIL HYDROCHLORIDE\TRIFLURIDINE
     Indication: Colorectal cancer metastatic
     Dosage: CYCLE 1. DOSE AND FREQUENCY UNKNOWN.
     Route: 048
     Dates: start: 20211025, end: 202112

REACTIONS (5)
  - Multiple sclerosis [Unknown]
  - Headache [Unknown]
  - Constipation [Unknown]
  - Nausea [Unknown]
  - Diarrhoea [Not Recovered/Not Resolved]

NARRATIVE: CASE EVENT DATE: 20211025
